FAERS Safety Report 8940678 (Version 1)
Quarter: 2012Q4

REPORT INFORMATION
  Report Type: 
  Country: JP (occurrence: JP)
  Receive Date: 20121203
  Receipt Date: 20121203
  Transmission Date: 20130627
  Serious: Yes (Hospitalization)
  Sender: FDA-Public Use
  Company Number: JP-ROCHE-1161899

PATIENT
  Sex: Male

DRUGS (5)
  1. RITUXIMAB [Suspect]
     Indication: LYMPHOMA
     Route: 065
  2. CYCLOPHOSPHAMIDE [Suspect]
     Indication: LYMPHOMA
     Route: 065
  3. DOXORUBICIN HYDROCHLORIDE [Suspect]
     Indication: LYMPHOMA
     Route: 065
  4. VINCRISTINE SULFATE [Suspect]
     Indication: LYMPHOMA
     Route: 065
  5. PREDNISOLONE [Suspect]
     Indication: LYMPHOMA
     Route: 065

REACTIONS (1)
  - Hepatitis B [Recovered/Resolved]
